FAERS Safety Report 7278773-2 (Version None)
Quarter: 2011Q1

REPORT INFORMATION
  Report Type: 
  Country: None (occurrence: None)
  Receive Date: 20110207
  Receipt Date: 20110128
  Transmission Date: 20110831
  Serious: Yes (Other)
  Sender: FDA-Public Use
  Company Number: NL-MPIJNJ-2011-00387

PATIENT

DRUGS (5)
  1. DEXAMETHASONE [Concomitant]
  2. VELCADE [Suspect]
     Indication: MULTIPLE MYELOMA
     Dosage: UNK
     Route: 065
     Dates: end: 20110125
  3. THALIDOMIDE [Concomitant]
  4. CRESTOR [Concomitant]
  5. COUMADIN [Concomitant]

REACTIONS (1)
  - COAGULATION TIME ABNORMAL [None]
